FAERS Safety Report 5579990-X (Version None)
Quarter: 2007Q4

REPORT INFORMATION
  Report Type: 
  Country: None (occurrence: None)
  Receive Date: 20071227
  Receipt Date: 20071126
  Transmission Date: 20080405
  Serious: Yes (Hospitalization)
  Sender: FDA-Public Use
  Company Number: B0485653A

PATIENT
  Age: 81 Year
  Sex: Male
  Weight: 45.904 kg

DRUGS (8)
  1. VALTREX [Suspect]
     Indication: HERPES ZOSTER
     Dosage: 1000 MG / THREE TIMES PER DAY / ORAL
     Route: 048
     Dates: start: 20070817, end: 20070818
  2. CALCIUM CARBONATE [Concomitant]
  3. EBASTINE [Concomitant]
  4. AMLODIPINE BESYLATE [Concomitant]
  5. FUROSEMIDE [Concomitant]
  6. CARVEDILOL [Concomitant]
  7. OLMESARTAN MEDOXOMIL [Concomitant]
  8. ALFACALCIDOL [Concomitant]

REACTIONS (8)
  - CONVULSION [None]
  - DIALYSIS [None]
  - DYSARTHRIA [None]
  - DYSLALIA [None]
  - ENCEPHALITIS [None]
  - ENCEPHALOPATHY [None]
  - FEELING ABNORMAL [None]
  - GAIT DISTURBANCE [None]
